FAERS Safety Report 5162447-8 (Version None)
Quarter: 2006Q4

REPORT INFORMATION
  Report Type: 
  Country: None (occurrence: None)
  Receive Date: 20061129
  Receipt Date: 20061129
  Transmission Date: 20070319
  Serious: Yes (Hospitalization)
  Sender: FDA-Public Use
  Company Number: None

PATIENT
  Sex: Male
  Weight: 7.8 kg

DRUGS (3)
  1. SYNAGIS [Suspect]
     Indication: INTUBATION
     Dosage: 100 MG ONCE A MONTH IM
     Route: 030
     Dates: start: 20061031, end: 20061031
  2. SYNAGIS [Suspect]
     Indication: PNEUMONIA
     Dosage: 100 MG ONCE A MONTH IM
     Route: 030
     Dates: start: 20061031, end: 20061031
  3. SYNAGIS [Suspect]
     Indication: PULMONARY HYPERTENSION
     Dosage: 17MG ONCE A MONTH IM
     Route: 030
     Dates: start: 20061031, end: 20061031

REACTIONS (5)
  - DIARRHOEA [None]
  - DYSPNOEA [None]
  - PYREXIA [None]
  - RASH [None]
  - RETCHING [None]
